FAERS Safety Report 17224936 (Version 1)
Quarter: 2020Q1

REPORT INFORMATION
  Report Type: Spontaneous
  Country: SE (occurrence: SE)
  Receive Date: 20200102
  Receipt Date: 20200102
  Transmission Date: 20200409
  Serious: Yes (Hospitalization, Other)
  Sender: FDA-Public Use
  Company Number: SE-PFIZER INC-2019561116

PATIENT
  Age: 17 Year
  Sex: Female
  Weight: 73 kg

DRUGS (2)
  1. SERTRALINE HCL [Suspect]
     Active Substance: SERTRALINE HYDROCHLORIDE
     Dosage: 75 MG, UNK
     Route: 048
     Dates: start: 20190131, end: 20190131
  2. PROPAVAN [Suspect]
     Active Substance: PROPIOMAZINE
     Dosage: 125 MG, UNK
     Route: 048
     Dates: start: 20190131, end: 20190131

REACTIONS (4)
  - Dysarthria [Unknown]
  - Intentional self-injury [Unknown]
  - Intentional overdose [Unknown]
  - Somnolence [Unknown]

NARRATIVE: CASE EVENT DATE: 20190131
